FAERS Safety Report 17590058 (Version 1)
Quarter: 2020Q1

REPORT INFORMATION
  Report Type: Spontaneous
  Country: US (occurrence: US)
  Receive Date: 20200327
  Receipt Date: 20200327
  Transmission Date: 20200409
  Serious: No
  Sender: FDA-Public Use
  Company Number: US-ASTRAZENECA-2020SE31987

PATIENT
  Age: 32033 Day
  Sex: Male

DRUGS (1)
  1. SYMBICORT [Suspect]
     Active Substance: BUDESONIDE\FORMOTEROL FUMARATE DIHYDRATE
     Indication: CHRONIC OBSTRUCTIVE PULMONARY DISEASE
     Dosage: 160-UG/INHAL , 2 PUFFS, TWO TIMES A DAY
     Route: 055
     Dates: start: 20200131

REACTIONS (5)
  - Eye disorder [Unknown]
  - Blood pressure decreased [Recovering/Resolving]
  - Hypersomnia [Not Recovered/Not Resolved]
  - Retinal disorder [Unknown]
  - Dizziness [Recovered/Resolved]

NARRATIVE: CASE EVENT DATE: 20200228
